FAERS Safety Report 22183622 (Version 1)
Quarter: 2023Q2

REPORT INFORMATION
  Report Type: Spontaneous
  Country: RU (occurrence: RU)
  Receive Date: 20230406
  Receipt Date: 20230406
  Transmission Date: 20230721
  Serious: Yes (Other)
  Sender: FDA-Public Use
  Company Number: RU-BAYER-2021A244097

PATIENT
  Age: 80 Year
  Sex: Female

DRUGS (8)
  1. XARELTO [Suspect]
     Active Substance: RIVAROXABAN
     Indication: Thrombosis prophylaxis
     Dosage: 20 MG, QD
     Route: 048
     Dates: start: 20211018
  2. DOMPERIDONE [Suspect]
     Active Substance: DOMPERIDONE
     Indication: Nausea
     Dosage: 10 MG, TID
     Route: 048
     Dates: start: 20211021, end: 20211025
  3. METOPROLOL [Concomitant]
     Active Substance: METOPROLOL
     Indication: Tachycardia
     Dosage: 50 MG, UNK
     Dates: start: 20211019
  4. LOSARTAN [Concomitant]
     Active Substance: LOSARTAN
     Indication: Hypertension
     Dosage: 12.5 MG, BID
     Route: 048
     Dates: start: 20211018
  5. EMOXYPINE SUCCINATE [Concomitant]
     Active Substance: EMOXYPINE SUCCINATE
     Indication: Vascular encephalopathy
     Dosage: 250 MG, QD
     Route: 042
     Dates: start: 20211022
  6. HYDROXYZINE CANON [Concomitant]
     Indication: Sleep disorder
     Dosage: 25 MG, QD
     Route: 048
     Dates: start: 20211022
  7. OMEPRAZOLE [Concomitant]
     Active Substance: OMEPRAZOLE
     Dosage: 20 MG, QD
     Route: 048
     Dates: start: 20211018
  8. PARAFFIN [Concomitant]
     Active Substance: PARAFFIN
     Indication: Constipation
     Dosage: 15 ML, TID
     Route: 048
     Dates: start: 20211028

REACTIONS (1)
  - Atrial fibrillation [Unknown]

NARRATIVE: CASE EVENT DATE: 20211025
